FAERS Safety Report 6053197-4 (Version None)
Quarter: 2009Q1

REPORT INFORMATION
  Report Type: 
  Country: None (occurrence: None)
  Receive Date: 20090123
  Receipt Date: 20090119
  Transmission Date: 20090719
  Serious: Yes (Hospitalization)
  Sender: FDA-Public Use
  Company Number: GXKR2009DE00820

PATIENT
  Age: 17 Year
  Sex: Female
  Weight: 61 kg

DRUGS (3)
  1. OXAZEPAM [Suspect]
     Indication: INTENTIONAL SELF-INJURY
     Dosage: ORAL
     Route: 048
  2. NORDAZEPAM [Suspect]
     Indication: INTENTIONAL SELF-INJURY
     Dosage: ORAL
     Route: 048
  3. DOXYLAMINE SUCCINATE [Suspect]
     Indication: INTENTIONAL SELF-INJURY

REACTIONS (5)
  - BLOOD GLUCOSE DECREASED [None]
  - CIRCULATORY COLLAPSE [None]
  - HYPOTENSION [None]
  - INTENTIONAL SELF-INJURY [None]
  - SOMNOLENCE [None]
